FAERS Safety Report 16986466 (Version 1)
Quarter: 2019Q4

REPORT INFORMATION
  Report Type: Spontaneous
  Country: US (occurrence: US)
  Receive Date: 20191101
  Receipt Date: 20191101
  Transmission Date: 20200122
  Serious: Yes (Other)
  Sender: FDA-Public Use
  Company Number: US-B.I. PHARMACEUTICALS,INC./RIDGEFIELD-2019-US-110235

PATIENT
  Sex: Female

DRUGS (2)
  1. COMBIVENT [Suspect]
     Active Substance: ALBUTEROL SULFATE\IPRATROPIUM BROMIDE
     Indication: PRODUCT USED FOR UNKNOWN INDICATION
     Dosage: COMBIVENT INHALATION AEROSOL
     Route: 065
     Dates: start: 2006
  2. COMBIVENT [Suspect]
     Active Substance: ALBUTEROL SULFATE\IPRATROPIUM BROMIDE
     Dosage: COMBIVENT? RESPIMAT? (IPRATROPIUM BROMIDE AND ALBUTEROL) INHALATION SP
     Route: 065

REACTIONS (8)
  - Cardiac failure congestive [Unknown]
  - Osteoarthritis [Unknown]
  - Ligament sprain [Unknown]
  - Hyperthyroidism [Unknown]
  - Knee operation [Unknown]
  - Abdominal hernia [Unknown]
  - Pain in extremity [Unknown]
  - Dyspnoea [Unknown]
